FAERS Safety Report 20369022 (Version 1)
Quarter: 2022Q1

REPORT INFORMATION
  Report Type: Spontaneous
  Country: DE (occurrence: DE)
  Receive Date: 20220124
  Receipt Date: 20220124
  Transmission Date: 20220423
  Serious: Yes (Hospitalization)
  Sender: FDA-Public Use
  Company Number: None

PATIENT
  Age: 86 Year
  Sex: Female
  Weight: 65 kg

DRUGS (7)
  1. CLOPIDOGREL [Suspect]
     Active Substance: CLOPIDOGREL BISULFATE
     Indication: Product used for unknown indication
     Dosage: 75 MG, 1-0-0-0, TABLETS
     Route: 048
  2. ATORVASTATIN [Suspect]
     Active Substance: ATORVASTATIN
     Indication: Product used for unknown indication
     Dosage: 40 MG, 0-0-0-1, TABLETS
     Route: 048
  3. EZETIMIBE [Suspect]
     Active Substance: EZETIMIBE
     Indication: Product used for unknown indication
     Dosage: 10 MG, 0.5-0-0-0, TABLETS
     Route: 048
  4. METAMIZOLE [Concomitant]
     Active Substance: METAMIZOLE
     Dosage: 500MG, AS REQUIRED, TABLETS
     Route: 048
  5. ESTRIOL [Concomitant]
     Active Substance: ESTRIOL
     Dosage: 0.5 MG, ACCORDING TO SCHEME, VSU
     Route: 067
  6. PANTOPRAZOLE [Concomitant]
     Active Substance: PANTOPRAZOLE
     Dosage: 20 MG, 1-0-0-0, PROLONGED-RELEASE TABLETS
     Route: 048
  7. TELMISARTAN [Concomitant]
     Active Substance: TELMISARTAN
     Dosage: 20 MG, 0-0-1-0, TABLETS
     Route: 048

REACTIONS (5)
  - Liver function test abnormal [Unknown]
  - Nausea [Unknown]
  - Pain [Unknown]
  - Pancreatitis acute [Unknown]
  - Vomiting [Unknown]
